FAERS Safety Report 19518975 (Version 1)
Quarter: 2021Q3

REPORT INFORMATION
  Report Type: Spontaneous
  Country: SE (occurrence: SE)
  Receive Date: 20210712
  Receipt Date: 20210712
  Transmission Date: 20211014
  Serious: Yes (Other)
  Sender: FDA-Public Use
  Company Number: SE-ACCORD-231238

PATIENT
  Age: 65 Year
  Sex: Male

DRUGS (2)
  1. FORXIGA [Suspect]
     Active Substance: DAPAGLIFLOZIN
     Indication: DIABETES MELLITUS
     Dosage: 10 MG 1X1, 10 MG FILM?COATED TABLET
     Dates: start: 20210202, end: 20210311
  2. EPLERENONE ACCORD [Suspect]
     Active Substance: EPLERENONE
     Indication: CARDIAC FAILURE
     Dosage: 25 MG 1X1, 25 MG FILM?COATED TABLET
     Dates: start: 20210202, end: 20210325

REACTIONS (2)
  - Pruritus [Recovered/Resolved]
  - Pemphigoid [Recovering/Resolving]

NARRATIVE: CASE EVENT DATE: 20210205
